FAERS Safety Report 17855053 (Version 1)
Quarter: 2020Q2

REPORT INFORMATION
  Report Type: Spontaneous
  Country: US (occurrence: US)
  Receive Date: 20200603
  Receipt Date: 20200603
  Transmission Date: 20200714
  Serious: No
  Sender: FDA-Public Use
  Company Number: US-009507513-2004USA006947

PATIENT
  Age: 74 Year
  Sex: Female

DRUGS (1)
  1. JANUVIA [Suspect]
     Active Substance: SITAGLIPTIN PHOSPHATE
     Indication: DIABETES MELLITUS
     Dosage: 100 MILLIGRAMS/DAILY
     Route: 048
     Dates: start: 2015

REACTIONS (4)
  - Product quality issue [Unknown]
  - Product residue present [Unknown]
  - Blood glucose increased [Unknown]
  - Product physical issue [Unknown]
